FAERS Safety Report 5248181-4 (Version None)
Quarter: 2007Q1

REPORT INFORMATION
  Report Type: 
  Country: None (occurrence: None)
  Receive Date: 20070227
  Receipt Date: 20060517
  Transmission Date: 20070707
  Serious: No
  Sender: FDA-Public Use
  Company Number: US-BRISTOL-MYERS SQUIBB COMPANY-13383849

PATIENT
  Age: 22 Year
  Sex: Female

DRUGS (3)
  1. METFORMIN HCL [Suspect]
     Indication: ANOVULATORY CYCLE
  2. CLOMID [Concomitant]
     Indication: ANOVULATORY CYCLE
  3. PROVERA [Concomitant]
     Indication: ANOVULATORY CYCLE

REACTIONS (2)
  - ANOVULATORY CYCLE [None]
  - MALAISE [None]
